FAERS Safety Report 9035255 (Version 1)
Quarter: 2013Q1

REPORT INFORMATION
  Report Type: Report from Study
  Country: US (occurrence: US)
  Receive Date: 20130129
  Receipt Date: 20130129
  Transmission Date: 20140127
  Serious: No
  Sender: FDA-Public Use
  Company Number: US-ABBOTT-12P-163-0895136-00

PATIENT
  Age: 32 Year
  Sex: Female
  Weight: 83.99 kg

DRUGS (5)
  1. HUMIRA 40 MG/0.8 ML PEN [Suspect]
     Indication: CROHN^S DISEASE
     Dosage: LOADING DOSE
     Route: 058
     Dates: start: 20120104, end: 20120104
  2. HUMIRA 40 MG/0.8 ML PEN [Suspect]
     Route: 058
     Dates: start: 20120118, end: 20120118
  3. SYNTHROID [Concomitant]
     Indication: HYPOTHYROIDISM
  4. PRILOSEC [Concomitant]
     Indication: GASTROOESOPHAGEAL REFLUX DISEASE
  5. PREDNISONE [Concomitant]
     Indication: CROHN^S DISEASE
     Route: 048
     Dates: start: 2010, end: 20120115

REACTIONS (2)
  - Menstrual disorder [Recovered/Resolved]
  - Vaginal haemorrhage [Not Recovered/Not Resolved]
